FAERS Safety Report 20474867 (Version 1)
Quarter: 2022Q1

REPORT INFORMATION
  Report Type: Report from Study
  Country: US (occurrence: US)
  Receive Date: 20220215
  Receipt Date: 20220215
  Transmission Date: 20220423
  Serious: No
  Sender: FDA-Public Use
  Company Number: US-KYOWAKIRIN-2022BKK001569

PATIENT

DRUGS (2)
  1. CRYSVITA [Suspect]
     Active Substance: BUROSUMAB-TWZA
     Indication: Hereditary hypophosphataemic rickets
     Dosage: 80 MG, (COMBINATION OF STRENGTHS OF 20 MG/ML AND 30 MG/ML TO ACHIEVE DOSE OF 80 MG) EVERY 4 WEEKS
     Route: 058
     Dates: start: 20191017
  2. CRYSVITA [Suspect]
     Active Substance: BUROSUMAB-TWZA
     Indication: Hereditary hypophosphataemic rickets
     Dosage: 80 MG, (COMBINATION OF STRENGTHS OF 20 MG/ML AND 30 MG/ML TO ACHIEVE DOSE OF 80 MG) EVERY 4 WEEKS
     Route: 058
     Dates: start: 20191017

REACTIONS (3)
  - COVID-19 [Unknown]
  - Fatigue [Unknown]
  - Back pain [Unknown]
